FAERS Safety Report 19012521 (Version 1)
Quarter: 2021Q1

REPORT INFORMATION
  Report Type: Spontaneous
  Country: US (occurrence: US)
  Receive Date: 20210316
  Receipt Date: 20210316
  Transmission Date: 20210420
  Serious: No
  Sender: FDA-Public Use
  Company Number: None

PATIENT
  Age: 58 Year
  Sex: Male
  Weight: 112.5 kg

DRUGS (11)
  1. ALPRAZOLAM. [Concomitant]
     Active Substance: ALPRAZOLAM
  2. ATORVASTATIN [Concomitant]
     Active Substance: ATORVASTATIN
  3. CYCLOBENZAPRINE. [Concomitant]
     Active Substance: CYCLOBENZAPRINE
  4. TOPCARE PAIN RELIEF PATCHES [Suspect]
     Active Substance: LIDOCAINE
     Indication: MYALGIA
     Dosage: ?          QUANTITY:1 PATCH(ES);?
     Route: 062
     Dates: start: 20210228, end: 20210302
  5. FLUTICASONE. [Concomitant]
     Active Substance: FLUTICASONE
  6. ACETAMINOPHEN. [Concomitant]
     Active Substance: ACETAMINOPHEN
  7. ATENOLOL. [Concomitant]
     Active Substance: ATENOLOL
  8. LORATADINE. [Concomitant]
     Active Substance: LORATADINE
  9. VIT D [Concomitant]
     Active Substance: VITAMIN D NOS
  10. ALLOPURINOL. [Concomitant]
     Active Substance: ALLOPURINOL
  11. MONTELUKAST [Concomitant]
     Active Substance: MONTELUKAST SODIUM

REACTIONS (2)
  - Application site hypoaesthesia [None]
  - Discomfort [None]

NARRATIVE: CASE EVENT DATE: 20210308
